FAERS Safety Report 19407802 (Version 2)
Quarter: 2021Q2

REPORT INFORMATION
  Report Type: Report from Study
  Country: BE (occurrence: NL)
  Receive Date: 20210611
  Receipt Date: 20210618
  Transmission Date: 20210717
  Serious: Yes (Death, Hospitalization)
  Sender: FDA-Public Use
  Company Number: NL-TEVA-2021-NL-1920001

PATIENT

DRUGS (5)
  1. CYCLOPHOSPHAMIDE. [Suspect]
     Active Substance: CYCLOPHOSPHAMIDE
     Indication: DRUG THERAPY
     Dosage: MATERNAL CYCLICAL THERAPY; RECEIVED 2 CYCLES OF THE REGIMEN
     Route: 064
  2. HYDROXYDAUNORUBICIN [Suspect]
     Active Substance: DOXORUBICIN
     Indication: DRUG THERAPY
     Dosage: MATERNAL CYCLICAL THERAPY; RECEIVED 2 CYCLES OF THE REGIMEN
     Route: 064
  3. PREDNISONE. [Suspect]
     Active Substance: PREDNISONE
     Indication: DRUG THERAPY
     Dosage: MATERNAL CYCLICAL THERAPY; RECEIVED 2 CYCLES OF THE REGIMEN
     Route: 064
  4. RITUXIMAB. [Suspect]
     Active Substance: RITUXIMAB
     Indication: DRUG THERAPY
     Dosage: MATERNAL CYCLICAL THERAPY; RECEIVED 2 CYCLES OF THE REGIMEN
     Route: 064
  5. VINCRISTINE [Suspect]
     Active Substance: VINCRISTINE
     Indication: DRUG THERAPY
     Dosage: MATERNAL CYCLICAL THERAPY; RECEIVED 2 CYCLES OF THE REGIMEN
     Route: 064

REACTIONS (6)
  - Sepsis [Fatal]
  - Foetal exposure during pregnancy [Unknown]
  - Neonatal respiratory distress syndrome [Unknown]
  - Premature baby [Unknown]
  - Respiratory failure [Fatal]
  - Circulatory collapse [Fatal]
